FAERS Safety Report 5060909-5 (Version None)
Quarter: 2006Q3

REPORT INFORMATION
  Report Type: 
  Country: None (occurrence: None)
  Receive Date: 20060720
  Receipt Date: 20060720
  Transmission Date: 20061208
  Serious: Yes (Hospitalization)
  Sender: FDA-Public Use
  Company Number: None

PATIENT
  Age: 57 Year
  Sex: Female
  Weight: 96.1626 kg

DRUGS (11)
  1. WARFARIN SODIUM [Suspect]
     Indication: AORTIC VALVE REPLACEMENT
     Dosage: 5MG  DAILY  PO
     Route: 048
     Dates: start: 20060428, end: 20060720
  2. WARFARIN SODIUM [Suspect]
     Indication: MITRAL VALVE REPAIR
     Dosage: 5MG  DAILY  PO
     Route: 048
     Dates: start: 20060428, end: 20060720
  3. ALENDRONATE SODIUM [Concomitant]
  4. AMIODARONE HCL [Concomitant]
  5. ASPIRIN [Concomitant]
  6. LEVOTHYROXINE SODIUM [Concomitant]
  7. LOSARTAN POSTASSIUM [Concomitant]
  8. MAGNESIUM OXIDE [Concomitant]
  9. POTASSIUM CHLORIDE [Concomitant]
  10. SERTRALINE [Concomitant]
  11. SIMVASTATIN [Concomitant]

REACTIONS (7)
  - ABDOMINAL PAIN LOWER [None]
  - DIARRHOEA [None]
  - FAECES DISCOLOURED [None]
  - FLATULENCE [None]
  - PLEURAL EFFUSION [None]
  - RECTAL HAEMORRHAGE [None]
  - RENAL FAILURE [None]
